FAERS Safety Report 7360268-9 (Version None)
Quarter: 2011Q1

REPORT INFORMATION
  Report Type: 
  Country: None (occurrence: None)
  Receive Date: 20110318
  Receipt Date: 20110307
  Transmission Date: 20110831
  Serious: Yes (Other)
  Sender: FDA-Public Use
  Company Number: AU-SOLVAY-00211001974

PATIENT
  Age: 76 Year
  Sex: Female

DRUGS (4)
  1. DILTIAZEM HYDROCHLORIDE [Concomitant]
     Indication: PRODUCT USED FOR UNKNOWN INDICATION
     Dosage: DAILY DOSE:  UNKNOWN
     Route: 065
  2. ACTONEL COMBI D [Concomitant]
     Indication: PRODUCT USED FOR UNKNOWN INDICATION
     Dosage: DAILY DOSE:  UNKNOWN
     Route: 065
  3. EFFEXOR [Suspect]
     Indication: DEPRESSION
     Dosage: DAILY DOSE: 150 MILLIGRAM(S)
     Route: 048
     Dates: end: 20101116
  4. PERINDOPRIL ERBUMINE [Suspect]
     Indication: PRODUCT USED FOR UNKNOWN INDICATION
     Dosage: DAILY DOSE:  UNKNOWN
     Route: 048

REACTIONS (4)
  - HEAD INJURY [None]
  - HYPONATRAEMIA [None]
  - FEMORAL NECK FRACTURE [None]
  - FALL [None]
